FAERS Safety Report 23277658 (Version 1)
Quarter: 2023Q4

REPORT INFORMATION
  Report Type: Spontaneous
  Country: JP (occurrence: JP)
  Receive Date: 20231208
  Receipt Date: 20231208
  Transmission Date: 20240110
  Serious: Yes (Other)
  Sender: FDA-Public Use
  Company Number: JP-SUN PHARMACEUTICAL INDUSTRIES LTD-2023RR-421686

PATIENT
  Age: 49 Year
  Sex: Male
  Weight: 103.9 kg

DRUGS (8)
  1. IRINOTECAN [Suspect]
     Active Substance: IRINOTECAN
     Indication: Colorectal cancer
     Dosage: 150 MILLIGRAM/SQ. METER, UNK
     Route: 065
  2. CHLORPROMAZINE [Suspect]
     Active Substance: CHLORPROMAZINE
     Indication: Hiccups
     Dosage: 25 MILLIGRAM, UNK
     Route: 065
  3. DEXAMETHASONE [Suspect]
     Active Substance: DEXAMETHASONE
     Indication: Hiccups
     Dosage: 8 MILLIGRAM, UNK
     Route: 065
  4. PREDNISOLONE [Suspect]
     Active Substance: PREDNISOLONE
     Indication: Hiccups
     Dosage: 60 MILLIGRAM, UNK
     Route: 065
  5. BEVACIZUMAB [Suspect]
     Active Substance: BEVACIZUMAB
     Indication: Colorectal cancer
     Dosage: 7.5 MILLIGRAM/KILOGRAM, UNK
     Route: 065
  6. TEGAFUR [Suspect]
     Active Substance: TEGAFUR
     Indication: Colorectal cancer
     Dosage: 120 MILLIGRAM, UNK
     Route: 065
  7. GIMERACIL [Suspect]
     Active Substance: GIMERACIL
     Indication: Colorectal cancer
     Dosage: 34.8 MILLIGRAM, UNK
     Route: 065
  8. OTERACIL [Suspect]
     Active Substance: OTERACIL
     Indication: Colorectal cancer
     Dosage: 117.6 MILLIGRAM
     Route: 065

REACTIONS (5)
  - Drug ineffective [Unknown]
  - Therapeutic product effect incomplete [Unknown]
  - Nausea [Unknown]
  - Vomiting [Unknown]
  - Hiccups [Unknown]
